FAERS Safety Report 9543513 (Version 1)
Quarter: 2013Q2

REPORT INFORMATION
  Report Type: Spontaneous
  Country: US (occurrence: None)
  Receive Date: 20130524
  Receipt Date: 20130524
  Transmission Date: 20140414
  Serious: Yes (Other)
  Sender: FDA-Public Use
  Company Number: PHEH2012US024777

PATIENT
  Age: 44 Year
  Sex: Male

DRUGS (7)
  1. GILENYA (FINGOLIMOD) CAPSULE, 0.5 MG [Suspect]
     Indication: MULTIPLE SCLEROSIS
     Route: 048
     Dates: start: 20121215, end: 20121214
  2. HYDROCODONE (HYDROCODONE) [Concomitant]
  3. ACETAMINOPHEN (PARACETAMOL) [Concomitant]
  4. ALPRAZOLAM (ALPRAZOLAM) [Concomitant]
  5. IBUPROFEN (IBUPROFEN) [Concomitant]
  6. FISH OIL (FISH OIL) [Concomitant]
  7. CHOLECALCIFEROL (COLECALCIFEROL) [Concomitant]

REACTIONS (4)
  - Cystoid macular oedema [None]
  - Vision blurred [None]
  - Visual impairment [None]
  - Visual acuity tests abnormal [None]
